FAERS Safety Report 4412228-5 (Version None)
Quarter: 2004Q3

REPORT INFORMATION
  Report Type: 
  Country: None (occurrence: None)
  Receive Date: 20040727
  Receipt Date: 20040715
  Transmission Date: 20050211
  Serious: Yes (Hospitalization)
  Sender: FDA-Public Use
  Company Number: US-JNJFOC-20040705329

PATIENT
  Age: 17 Month
  Sex: Female

DRUGS (2)
  1. ACETAMINOPHEN [Suspect]
     Dates: start: 20040401, end: 20040401
  2. VICODIN [Suspect]
     Dates: start: 20040401, end: 20040401

REACTIONS (3)
  - CHILD ABUSE [None]
  - LIVER DISORDER [None]
  - MULTIPLE DRUG OVERDOSE [None]
